FAERS Safety Report 6994765-2 (Version None)
Quarter: 2010Q3

REPORT INFORMATION
  Report Type: 
  Country: None (occurrence: None)
  Receive Date: 20100917
  Receipt Date: 20090807
  Transmission Date: 20110219
  Serious: Yes (Other)
  Sender: FDA-Public Use
  Company Number: HQWYE107109AUG04

PATIENT
  Sex: Female
  Weight: 59.02 kg

DRUGS (4)
  1. PREMPRO [Suspect]
     Dosage: 0.625MG/2.5MG DAILY
     Route: 048
     Dates: start: 19980101
  2. PROVERA [Suspect]
     Indication: HORMONE REPLACEMENT THERAPY
     Dosage: UNKNOWN
     Route: 048
     Dates: start: 19920101, end: 19980101
  3. ZYRTEC [Concomitant]
  4. PREMARIN [Suspect]
     Dosage: UNKNOWN
     Route: 048
     Dates: start: 19920101

REACTIONS (2)
  - BREAST CANCER [None]
  - METRORRHAGIA [None]
